FAERS Safety Report 6456298-1 (Version None)
Quarter: 2009Q4

REPORT INFORMATION
  Report Type: 
  Country: None (occurrence: None)
  Receive Date: 20091125
  Receipt Date: 20091112
  Transmission Date: 20100525
  Serious: Yes (Other)
  Sender: FDA-Public Use
  Company Number: US-ROCHE-668586

PATIENT
  Age: 38 Year
  Sex: Male

DRUGS (2)
  1. PEGASYS [Suspect]
     Indication: HEPATITIS B
     Route: 065
  2. COPEGUS [Suspect]
     Indication: HEPATITIS B
     Route: 065

REACTIONS (3)
  - AMOEBIASIS [None]
  - DIARRHOEA HAEMORRHAGIC [None]
  - DYSPLASIA [None]
